FAERS Safety Report 11538299 (Version 2)
Quarter: 2015Q4

REPORT INFORMATION
  Report Type: Spontaneous
  Country: US (occurrence: US)
  Receive Date: 20150922
  Receipt Date: 20151223
  Transmission Date: 20160304
  Serious: No
  Sender: FDA-Public Use
  Company Number: US-CELGENEUS-USA-2015092714

PATIENT
  Age: 61 Year
  Sex: Male

DRUGS (2)
  1. CLOBETASOL CR [Concomitant]
     Indication: PSORIASIS
     Dosage: 30 MILLIGRAM
     Route: 065
     Dates: start: 201505
  2. OTEZLA [Suspect]
     Active Substance: APREMILAST
     Indication: PSORIASIS
     Dosage: 60 MILLIGRAM
     Route: 048
     Dates: start: 20150313, end: 201511

REACTIONS (1)
  - Diarrhoea [Recovered/Resolved]

NARRATIVE: CASE EVENT DATE: 20150313
